FAERS Safety Report 25214179 (Version 1)
Quarter: 2025Q2

REPORT INFORMATION
  Report Type: Spontaneous
  Country: US (occurrence: US)
  Receive Date: 20250418
  Receipt Date: 20250418
  Transmission Date: 20250716
  Serious: No
  Sender: ABBVIE
  Company Number: US-ABBVIE-6237959

PATIENT
  Age: 80 Year
  Sex: Female

DRUGS (1)
  1. ESTRADIOL [Suspect]
     Active Substance: ESTRADIOL
     Indication: Infection prophylaxis
     Route: 065

REACTIONS (2)
  - Bone density abnormal [Unknown]
  - Off label use [Unknown]
